FAERS Safety Report 5114154-5 (Version None)
Quarter: 2006Q3

REPORT INFORMATION
  Report Type: 
  Country: None (occurrence: None)
  Receive Date: 20060925
  Receipt Date: 20060914
  Transmission Date: 20061208
  Serious: Yes (Hospitalization)
  Sender: FDA-Public Use
  Company Number: US-JNJFOC-20060903742

PATIENT
  Sex: Male
  Weight: 83.92 kg

DRUGS (2)
  1. FENTANYL TRANSDERMAL SYSTEM [Suspect]
     Indication: RHEUMATOID ARTHRITIS
     Dosage: 50UG/HR PATCH AND 100UG/HR PATCH
     Route: 062
  2. FENTANYL TRANSDERMAL SYSTEM [Suspect]
     Indication: PAIN
     Route: 062

REACTIONS (8)
  - CARDIAC DISORDER [None]
  - CONTUSION [None]
  - FALL [None]
  - HEART RATE IRREGULAR [None]
  - HYPERHIDROSIS [None]
  - INFECTION [None]
  - MUSCULOSKELETAL PAIN [None]
  - PAIN [None]
